FAERS Safety Report 12561432 (Version 1)
Quarter: 2016Q3

REPORT INFORMATION
  Report Type: Other
  Country: None (occurrence: PT)
  Receive Date: 20160715
  Receipt Date: 20160715
  Transmission Date: 20161109
  Serious: Yes (Hospitalization)
  Sender: FDA-Public Use
  Company Number: PT-MERCK KGAA-1055102

PATIENT

DRUGS (1)
  1. NOVOTHYROX [Suspect]
     Active Substance: LEVOTHYROXINE SODIUM

REACTIONS (4)
  - Thyroxine free increased [None]
  - Blood thyroid stimulating hormone decreased [None]
  - Benign intracranial hypertension [None]
  - Blood thyroid stimulating hormone increased [None]
